FAERS Safety Report 19395437 (Version 2)
Quarter: 2021Q2

REPORT INFORMATION
  Report Type: Spontaneous
  Country: GB (occurrence: GB)
  Receive Date: 20210609
  Receipt Date: 20210630
  Transmission Date: 20210717
  Serious: Yes (Other)
  Sender: FDA-Public Use
  Company Number: GB-TEVA-2021-GB-1919115

PATIENT
  Age: 21 Year
  Sex: Female
  Weight: 104.19 kg

DRUGS (3)
  1. LEVOTHYROXINE. [Suspect]
     Active Substance: LEVOTHYROXINE
     Indication: ILL-DEFINED DISORDER
     Dosage: 25MCG
     Route: 048
     Dates: start: 202103, end: 20210528
  2. CILIQUE [Concomitant]
     Indication: ILL-DEFINED DISORDER
  3. LEVOTHYROXINE. [Suspect]
     Active Substance: LEVOTHYROXINE
     Indication: THYROID DISORDER

REACTIONS (8)
  - Agitation [Unknown]
  - Tremor [Unknown]
  - Medication error [Unknown]
  - Suicidal ideation [Not Recovered/Not Resolved]
  - Alopecia [Not Recovered/Not Resolved]
  - Anxiety [Not Recovered/Not Resolved]
  - Palpitations [Unknown]
  - Vomiting [Unknown]

NARRATIVE: CASE EVENT DATE: 202103
